FAERS Safety Report 22043796 (Version 1)
Quarter: 2023Q1

REPORT INFORMATION
  Report Type: Report from Study
  Country: US (occurrence: US)
  Receive Date: 20230228
  Receipt Date: 20230228
  Transmission Date: 20230417
  Serious: Yes (Other)
  Sender: FDA-Public Use
  Company Number: US-002147023-NVSC2023US043012

PATIENT
  Sex: Male

DRUGS (1)
  1. KESIMPTA [Suspect]
     Active Substance: OFATUMUMAB
     Indication: Product used for unknown indication
     Dosage: UNK
     Route: 065

REACTIONS (6)
  - Angina pectoris [Recovering/Resolving]
  - Muscle spasms [Recovered/Resolved]
  - Urinary incontinence [Recovering/Resolving]
  - Chills [Recovering/Resolving]
  - Headache [Recovering/Resolving]
  - Vomiting [Recovering/Resolving]
